FAERS Safety Report 15498408 (Version 1)
Quarter: 2018Q4

REPORT INFORMATION
  Report Type: Spontaneous
  Country: US (occurrence: US)
  Receive Date: 20181005
  Receipt Date: 20181005
  Transmission Date: 20190205
  Serious: Yes (Death)
  Sender: FDA-Public Use
  Company Number: None

PATIENT
  Age: 78 Year
  Sex: Male
  Weight: 76.66 kg

DRUGS (1)
  1. VORICONAZOLE 200 MG [Suspect]
     Active Substance: VORICONAZOLE
     Indication: ACUTE MYELOID LEUKAEMIA
     Dosage: ?          OTHER DOSE:MG;OTHER FREQUENCY:DAYS 1,8, AND 15;?
     Route: 048
     Dates: start: 20170906, end: 20180926

REACTIONS (1)
  - Death [None]

NARRATIVE: CASE EVENT DATE: 20180926
